FAERS Safety Report 23532533 (Version 1)
Quarter: 2024Q1

REPORT INFORMATION
  Report Type: Spontaneous
  Country: US (occurrence: US)
  Receive Date: 20240216
  Receipt Date: 20240216
  Transmission Date: 20240409
  Serious: No
  Sender: FDA-Public Use
  Company Number: US-PERRIGO-23US009311

PATIENT
  Sex: Male

DRUGS (2)
  1. LOPERAMIDE HYDROCHLORIDE [Suspect]
     Active Substance: LOPERAMIDE HYDROCHLORIDE
     Indication: Product used for unknown indication
     Dosage: 4 MG, SINGLE
     Route: 048
     Dates: start: 202308, end: 202308
  2. NORCO [Suspect]
     Active Substance: ACETAMINOPHEN\HYDROCODONE BITARTRATE
     Indication: Product used for unknown indication
     Dosage: 325 MG, UNK
     Route: 065
     Dates: start: 202308

REACTIONS (3)
  - Asthenia [Unknown]
  - Dizziness [Unknown]
  - Product administration error [Unknown]

NARRATIVE: CASE EVENT DATE: 20230801
